FAERS Safety Report 10488577 (Version 2)
Quarter: 2014Q4

REPORT INFORMATION
  Report Type: Spontaneous
  Country: US (occurrence: None)
  Receive Date: 20140930
  Receipt Date: 20141027
  Transmission Date: 20150528
  Serious: Yes (Other)
  Sender: FDA-Public Use
  Company Number: 2014-US-012190

PATIENT
  Age: 52 Year
  Sex: Male
  Weight: 122.4 kg

DRUGS (11)
  1. TRAZODONE HCL (TRAZODONE HYDROCHLORIDE) [Concomitant]
  2. XYREM [Suspect]
     Active Substance: SODIUM OXYBATE
     Indication: INSOMNIA
     Route: 048
     Dates: start: 201005, end: 2010
  3. KLONOPIN [Concomitant]
     Active Substance: CLONAZEPAM
  4. LISINOPRIL (LISINOPRIL) [Concomitant]
     Active Substance: LISINOPRIL
  5. DEXILANT [Concomitant]
     Active Substance: DEXLANSOPRAZOLE
  6. BYSTOLIC [Concomitant]
     Active Substance: NEBIVOLOL HYDROCHLORIDE
  7. OXYCONTIN [Concomitant]
     Active Substance: OXYCODONE HYDROCHLORIDE
  8. TRAMADOL (TRAMADOL HYDROCHLORIDE) [Concomitant]
     Active Substance: TRAMADOL HYDROCHLORIDE
  9. AMLODIPINE BESYLATE (AMLODIPINE BESILATE) [Concomitant]
     Active Substance: AMLODIPINE BESYLATE
  10. TIZANIDINE (TIZANIDINE HYDROCHLORIDE) [Concomitant]
     Active Substance: TIZANIDINE HYDROCHLORIDE
  11. MELOXICAM (MELOXICAM) [Concomitant]
     Active Substance: MELOXICAM

REACTIONS (3)
  - Porphyria [None]
  - Prescribed overdose [None]
  - Off label use [None]

NARRATIVE: CASE EVENT DATE: 201011
